FAERS Safety Report 23589040 (Version 2)
Quarter: 2024Q1

REPORT INFORMATION
  Report Type: Spontaneous
  Country: US (occurrence: None)
  Receive Date: 20240303
  Receipt Date: 20240319
  Transmission Date: 20240410
  Serious: Yes (Death, Hospitalization, Other)
  Sender: FDA-Public Use
  Company Number: US-ROCHE-3513658

PATIENT
  Age: 71 Year
  Sex: Male
  Weight: 83.5 kg

DRUGS (16)
  1. CELLCEPT [Suspect]
     Active Substance: MYCOPHENOLATE MOFETIL
     Indication: Product used for unknown indication
     Dosage: 1 TABLET TWICE A DAY FOR 1 WEEK, THEN TAKE 2 TABLETS TWICE DAILY PER THE DISCHARGE SUMMARY
     Route: 048
     Dates: start: 20230926
  2. KRYSTEXXA [Suspect]
     Active Substance: PEGLOTICASE
     Indication: Gouty tophus
     Route: 042
     Dates: start: 20230803, end: 20231116
  3. KRYSTEXXA [Suspect]
     Active Substance: PEGLOTICASE
     Route: 042
     Dates: start: 20230824
  4. KRYSTEXXA [Suspect]
     Active Substance: PEGLOTICASE
     Route: 042
     Dates: start: 20230914
  5. OMEPRAZOLE [Concomitant]
     Active Substance: OMEPRAZOLE
     Dosage: ORAL TABLET DELAYED RELEASE 20 MG
  6. NITROGLYCERIN [Concomitant]
     Active Substance: NITROGLYCERIN
     Dosage: SUBLINGUAL TABLET SUB 0. 4 MG
  7. METOPROLOL SUCCINATE [Concomitant]
     Active Substance: METOPROLOL SUCCINATE
     Dosage: ORAL TABLET 25 MG
  8. HYDRALAZINE HCL [Concomitant]
     Active Substance: HYDRALAZINE HYDROCHLORIDE
     Dosage: ORAL TABLET 50 MG
  9. FUROSEMIDE [Concomitant]
     Active Substance: FUROSEMIDE
     Dosage: ORAL TABLET 80 MG
  10. ELIQUIS [Concomitant]
     Active Substance: APIXABAN
     Dosage: ORAL TABLET 2. 5 MG
  11. DILTIAZEM [Concomitant]
     Active Substance: DILTIAZEM
     Dosage: ORAL CAPSULE EXTENDED RELEASE 120 MG
  12. CALCIUM ACETATE [Concomitant]
     Active Substance: CALCIUM ACETATE
     Dosage: ORAL 667MG
  13. ATORVASTATIN CALCIUM [Concomitant]
     Active Substance: ATORVASTATIN CALCIUM
     Dosage: ORAL TABLET 40MG
  14. AMIODARONE HYDROCHLORIDE [Concomitant]
     Active Substance: AMIODARONE HYDROCHLORIDE
     Dosage: ORAL TABLET?200 MG
  15. ASPIRIN [Concomitant]
     Active Substance: ASPIRIN
  16. NOVOLOG [Concomitant]
     Active Substance: INSULIN ASPART
     Dosage: U-100, 5 UNITS IN TO THE SKIN 4 TIMES DAILY BEFORE MEALS AND NIGHTLY IF CBG }300 SINCE 17AUG2023

REACTIONS (11)
  - Cardiac arrest [Fatal]
  - Hyperkalaemia [Fatal]
  - Sepsis [Unknown]
  - Blood glucose decreased [Recovered/Resolved]
  - Gangrene [Unknown]
  - Spinal compression fracture [Unknown]
  - Osteonecrosis [Unknown]
  - Diabetic foot [Unknown]
  - Peripheral arterial occlusive disease [Unknown]
  - Arterial occlusive disease [Unknown]
  - Product use in unapproved therapeutic environment [Unknown]

NARRATIVE: CASE EVENT DATE: 20230905
